FAERS Safety Report 6842223-8 (Version None)
Quarter: 2010Q3

REPORT INFORMATION
  Report Type: 
  Country: None (occurrence: None)
  Receive Date: 20100714
  Receipt Date: 20071029
  Transmission Date: 20110219
  Serious: Yes (Other)
  Sender: FDA-Public Use
  Company Number: US-PFIZER INC-2007060598

PATIENT
  Sex: Female
  Weight: 113.9 kg

DRUGS (2)
  1. CHANTIX [Suspect]
     Indication: SMOKING CESSATION THERAPY
     Dosage: NA EVERY NA DAYS
     Dates: start: 20070501
  2. VERAPAMIL [Concomitant]
     Indication: HYPERTENSION

REACTIONS (6)
  - ABDOMINAL DISCOMFORT [None]
  - ABNORMAL DREAMS [None]
  - BENIGN NEOPLASM OF THYROID GLAND [None]
  - INFECTION [None]
  - NAUSEA [None]
  - WEIGHT INCREASED [None]
